FAERS Safety Report 21527560 (Version 1)
Quarter: 2022Q4

REPORT INFORMATION
  Report Type: Spontaneous
  Country: US (occurrence: US)
  Receive Date: 20221031
  Receipt Date: 20221031
  Transmission Date: 20230113
  Serious: Yes (Other)
  Sender: FDA-Public Use
  Company Number: US-COOPERSURGICAL, INC.-US-2022CPS003699

PATIENT
  Age: 46 Year
  Sex: Female

DRUGS (1)
  1. PARAGARD T 380A [Suspect]
     Active Substance: COPPER
     Indication: Product used for unknown indication
     Route: 015

REACTIONS (13)
  - Endometriosis [Unknown]
  - Bladder perforation [Recovered/Resolved]
  - Medical device site erosion [Recovered/Resolved]
  - Uterine perforation [Recovered/Resolved]
  - Embedded device [Recovered/Resolved]
  - Device dislocation [Recovered/Resolved]
  - Pregnancy with contraceptive device [Recovered/Resolved]
  - Haematuria [Unknown]
  - Pollakiuria [Unknown]
  - Hypomenorrhoea [Unknown]
  - Pelvic discomfort [Unknown]
  - Drug ineffective [Unknown]
  - Device use issue [Unknown]
